FAERS Safety Report 25624436 (Version 1)
Quarter: 2025Q3

REPORT INFORMATION
  Report Type: Spontaneous
  Country: JP (occurrence: JP)
  Receive Date: 20250730
  Receipt Date: 20250730
  Transmission Date: 20251021
  Serious: Yes (Hospitalization)
  Sender: EISAI
  Company Number: JP-Eisai-202505160_LEN-RCC_P_1

PATIENT
  Sex: Male

DRUGS (4)
  1. LENVIMA [Suspect]
     Active Substance: LENVATINIB
     Indication: Renal cell carcinoma
     Dates: start: 202401, end: 202505
  2. LENVIMA [Suspect]
     Active Substance: LENVATINIB
     Dates: start: 202505, end: 202507
  3. KEYTRUDA [Suspect]
     Active Substance: PEMBROLIZUMAB
     Indication: Renal cell carcinoma
     Dosage: DOSE AND FREQUENCY WERE UNKNOWN
     Dates: start: 202401, end: 202507
  4. CORTRIL [Concomitant]
     Active Substance: HYDROCORTISONE
     Indication: Thyroid disorder

REACTIONS (2)
  - Diarrhoea [Recovering/Resolving]
  - Endocrine disorder [Recovered/Resolved]

NARRATIVE: CASE EVENT DATE: 20250501
